FAERS Safety Report 19913183 (Version 1)
Quarter: 2021Q4

REPORT INFORMATION
  Report Type: Spontaneous
  Country: US (occurrence: US)
  Receive Date: 20211004
  Receipt Date: 20211004
  Transmission Date: 20220303
  Serious: Yes (Other)
  Sender: FDA-Public Use
  Company Number: US-MLMSERVICE-20210915-3107939-1

PATIENT

DRUGS (8)
  1. CYCLOPHOSPHAMIDE [Suspect]
     Active Substance: CYCLOPHOSPHAMIDE
     Indication: Sarcoma
     Dosage: UNK, 4 CYCLICAL
     Route: 065
  2. IRINOTECAN [Suspect]
     Active Substance: IRINOTECAN
     Indication: Sarcoma
     Dosage: UNK
     Route: 065
  3. IFOSFAMIDE [Suspect]
     Active Substance: IFOSFAMIDE
     Indication: Sarcoma
     Dosage: UNK, 4 CYCLICAL
     Route: 065
  4. DACTINOMYCIN [Suspect]
     Active Substance: DACTINOMYCIN
     Indication: Sarcoma
     Dosage: UNK, 4 CYCLICAL
     Route: 065
  5. VINCRISTINE [Suspect]
     Active Substance: VINCRISTINE
     Indication: Sarcoma
     Dosage: UNK, 4 CYCLICAL
     Route: 065
  6. ETOPOSIDE [Suspect]
     Active Substance: ETOPOSIDE
     Indication: Sarcoma
     Dosage: UNK, 4 CYCLICAL
     Route: 065
  7. PAZOPANIB [Concomitant]
     Active Substance: PAZOPANIB
     Indication: Sarcoma
     Dosage: 400 MILLIGRAM, QD
     Route: 065
  8. PAZOPANIB [Concomitant]
     Active Substance: PAZOPANIB
     Dosage: UNK, COMBINATION TREATMENT
     Route: 065

REACTIONS (3)
  - Cardiac dysfunction [Unknown]
  - Toxicity to various agents [Unknown]
  - Drug intolerance [Unknown]
